FAERS Safety Report 4883477-7 (Version None)
Quarter: 2006Q1

REPORT INFORMATION
  Report Type: 
  Country: None (occurrence: None)
  Receive Date: 20060118
  Receipt Date: 20041012
  Transmission Date: 20060701
  Serious: Yes (Hospitalization, Disabling, Other)
  Sender: FDA-Public Use
  Company Number: US-MERCK-0410USA01809

PATIENT
  Age: 43 Year
  Sex: Female
  Weight: 80 kg

DRUGS (13)
  1. VIOXX [Suspect]
     Indication: BACK PAIN
     Route: 048
     Dates: start: 19990101, end: 20041001
  2. VIOXX [Suspect]
     Indication: ARTHRITIS
     Route: 048
     Dates: start: 19990101, end: 20041001
  3. PLAVIX [Concomitant]
     Route: 065
  4. PREMARIN [Concomitant]
     Route: 065
  5. LEVOTHYROXINE SODIUM [Concomitant]
     Route: 065
  6. CELEXA [Concomitant]
     Route: 065
  7. CARBATROL [Concomitant]
     Route: 065
  8. AGGRENOX [Concomitant]
     Route: 065
  9. CRESTOR [Concomitant]
     Route: 065
  10. LORTAB [Concomitant]
     Route: 065
  11. LIPITOR [Concomitant]
     Route: 065
  12. DIAZEPAM [Concomitant]
     Route: 065
  13. LIPITOR [Concomitant]
     Route: 065

REACTIONS (7)
  - CEREBROVASCULAR DISORDER [None]
  - INTRACRANIAL ANEURYSM [None]
  - LACUNAR INFARCTION [None]
  - OBESITY [None]
  - SUBARACHNOID HAEMORRHAGE [None]
  - TRANSIENT ISCHAEMIC ATTACK [None]
  - UTERINE LEIOMYOMA [None]
